FAERS Safety Report 5593842-0 (Version None)
Quarter: 2008Q1

REPORT INFORMATION
  Report Type: 
  Country: None (occurrence: None)
  Receive Date: 20080116
  Receipt Date: 20080104
  Transmission Date: 20080703
  Serious: Yes (Hospitalization)
  Sender: FDA-Public Use
  Company Number: FR-ELI_LILLY_AND_COMPANY-FR200711003812

PATIENT
  Sex: Female

DRUGS (7)
  1. CYMBALTA [Suspect]
     Indication: DEPRESSION
     Dosage: UNK, UNK
     Route: 048
     Dates: start: 20071024, end: 20071101
  2. LEXOMIL [Concomitant]
     Indication: BIPOLAR DISORDER
     Route: 048
     Dates: start: 19870101
  3. LYSANXIA [Concomitant]
     Indication: BIPOLAR DISORDER
     Route: 048
     Dates: start: 19870101
  4. NEBILOX [Concomitant]
     Route: 048
  5. STILNOX [Concomitant]
     Indication: INSOMNIA
     Route: 048
  6. DEPAKOTE [Concomitant]
     Indication: BIPOLAR DISORDER
     Route: 048
  7. XANAX [Concomitant]
     Route: 048

REACTIONS (4)
  - COMA [None]
  - PNEUMONIA ASPIRATION [None]
  - RHABDOMYOLYSIS [None]
  - SUICIDE ATTEMPT [None]
